FAERS Safety Report 8602795-X (Version None)
Quarter: 2012Q3

REPORT INFORMATION
  Report Type: 
  Country: None (occurrence: None)
  Receive Date: 20120817
  Receipt Date: 20120809
  Transmission Date: 20120928
  Serious: Yes (Other)
  Sender: FDA-Public Use
  Company Number: CO-ELI_LILLY_AND_COMPANY-CO201208004017

PATIENT
  Age: 53 Year
  Sex: Female

DRUGS (3)
  1. FORTEO [Suspect]
     Indication: OSTEOPOROSIS
     Dosage: 20 UG, QD
     Route: 058
     Dates: start: 20110601, end: 20120801
  2. CALCIUM +VIT D [Concomitant]
     Dosage: UNK, UNKNOWN
     Route: 065
  3. PREDNISOLONE [Concomitant]
     Dosage: UNK, UNKNOWN
     Route: 065

REACTIONS (5)
  - ARTHRALGIA [None]
  - PAIN [None]
  - VOMITING [None]
  - WEIGHT DECREASED [None]
  - PAIN IN EXTREMITY [None]
